FAERS Safety Report 6254214-9 (Version None)
Quarter: 2009Q3

REPORT INFORMATION
  Report Type: 
  Country: None (occurrence: None)
  Receive Date: 20090701
  Receipt Date: 20090701
  Transmission Date: 20100115
  Serious: No
  Sender: FDA-Public Use
  Company Number: None

PATIENT

DRUGS (1)
  1. MAALOX TOTAL RELIEF [Suspect]

REACTIONS (4)
  - FAECES DISCOLOURED [None]
  - GASTROINTESTINAL DISORDER [None]
  - PRODUCT FORMULATION ISSUE [None]
  - PRODUCT LABEL CONFUSION [None]
